FAERS Safety Report 8872518 (Version 1)
Quarter: 2012Q4

REPORT INFORMATION
  Report Type: 
  Country: US (occurrence: US)
  Receive Date: 20121030
  Receipt Date: 20121030
  Transmission Date: 20130627
  Serious: Yes (Other)
  Sender: FDA-Public Use
  Company Number: US-JNJFOC-20121013785

PATIENT
  Age: 63 Year
  Sex: Female

DRUGS (1)
  1. NUCYNTA [Suspect]
     Indication: ANALGESIC THERAPY
     Dosage: 2 tablets per day
     Route: 048
     Dates: start: 201210, end: 201210

REACTIONS (4)
  - Hallucination [Unknown]
  - Nausea [Unknown]
  - Feeling drunk [Unknown]
  - Feeling abnormal [Unknown]
